FAERS Safety Report 4829878-4 (Version None)
Quarter: 2005Q4

REPORT INFORMATION
  Report Type: 
  Country: None (occurrence: None)
  Receive Date: 20051115
  Receipt Date: 20051103
  Transmission Date: 20060501
  Serious: Yes (Hospitalization)
  Sender: FDA-Public Use
  Company Number: 2005151757

PATIENT
  Age: 80 Year
  Sex: Male
  Weight: 77.1115 kg

DRUGS (10)
  1. LYRICA [Suspect]
     Indication: NEUROPATHY PERIPHERAL
     Dosage: 25 MG
     Dates: start: 20051101, end: 20051103
  2. ZOCOR [Concomitant]
  3. ZETIA [Concomitant]
  4. DIABETA [Concomitant]
  5. GLUCOPHAGE [Concomitant]
  6. ALTACE [Concomitant]
  7. PROTONIX [Concomitant]
  8. PLETAL [Concomitant]
  9. PREDNISONE [Concomitant]
  10. COLACE (DOCUSATE SODIUM) [Concomitant]

REACTIONS (4)
  - BACK PAIN [None]
  - BLOOD CREATINE PHOSPHOKINASE INCREASED [None]
  - BLOOD UREA INCREASED [None]
  - DIZZINESS [None]
